FAERS Safety Report 26090243 (Version 1)
Quarter: 2025Q4

REPORT INFORMATION
  Report Type: Spontaneous
  Country: US (occurrence: US)
  Receive Date: 20251126
  Receipt Date: 20251126
  Transmission Date: 20260117
  Serious: No
  Sender: TOLMAR
  Company Number: US-Tolmar-TLM-2025-08656

PATIENT
  Age: 75 Year

DRUGS (4)
  1. ELIGARD [Suspect]
     Active Substance: LEUPROLIDE ACETATE
     Indication: Prostate cancer metastatic
     Dosage: NOT ADMINISTERED ?NDC: 6293522710 (SAME FOR BOTH)?GTIN: 00362935227106 (SAME FOR BOTH)?SN: 424103849
     Dates: start: 20251113
  2. ELIGARD [Suspect]
     Active Substance: LEUPROLIDE ACETATE
     Indication: Hormone-refractory prostate cancer
     Dosage: REPLACEMENT DOSE
  3. DEVICE [Suspect]
     Active Substance: DEVICE
     Indication: Prostate cancer metastatic
     Dosage: NDC: 6293522710 (SAME FOR BOTH)?GTIN: 00362935227106 (SAME FOR BOTH)?SN: 4241038495953 (FOR THE OTHE
  4. DEVICE [Suspect]
     Active Substance: DEVICE
     Indication: Hormone-refractory prostate cancer

REACTIONS (3)
  - Intercepted product preparation error [Unknown]
  - Device leakage [Unknown]
  - Device breakage [Unknown]

NARRATIVE: CASE EVENT DATE: 20251113
